FAERS Safety Report 22321878 (Version 1)
Quarter: 2023Q2

REPORT INFORMATION
  Report Type: Spontaneous
  Country: JP (occurrence: JP)
  Receive Date: 20230516
  Receipt Date: 20230516
  Transmission Date: 20230722
  Serious: Yes (Hospitalization)
  Sender: FDA-Public Use
  Company Number: None

PATIENT
  Age: 15 Month
  Sex: Male
  Weight: 9 kg

DRUGS (8)
  1. LEVETIRACETAM [Suspect]
     Active Substance: LEVETIRACETAM
     Indication: Electroencephalogram abnormal
  2. FOSPHENYTOIN [Concomitant]
     Active Substance: FOSPHENYTOIN
  3. THIAMYLAL [Concomitant]
     Active Substance: THIAMYLAL
  4. KETAMINE [Concomitant]
     Active Substance: KETAMINE
  5. PHENOBARBITAL [Concomitant]
     Active Substance: PHENOBARBITAL
     Route: 048
  6. OLPRINONE HYDROCHLORIDE [Concomitant]
     Active Substance: OLPRINONE HYDROCHLORIDE
     Dosage: /MINUTE
  7. MIDAZOLAM [Concomitant]
     Active Substance: MIDAZOLAM
     Indication: Hyperthermia malignant
     Dosage: MG/KG/HOUR
  8. MIDAZOLAM [Concomitant]
     Active Substance: MIDAZOLAM

REACTIONS (1)
  - Treatment failure [Not Recovered/Not Resolved]
